FAERS Safety Report 7306603-9 (Version None)
Quarter: 2011Q1

REPORT INFORMATION
  Report Type: 
  Country: None (occurrence: None)
  Receive Date: 20110222
  Receipt Date: 20110214
  Transmission Date: 20110831
  Serious: Yes (Other)
  Sender: FDA-Public Use
  Company Number: US-ROCHE-738912

PATIENT
  Sex: Female
  Weight: 53.5 kg

DRUGS (6)
  1. CELEBREX [Concomitant]
     Dates: start: 20000101, end: 20060101
  2. PROZAC [Concomitant]
     Indication: DEPRESSION
     Dates: start: 19930101
  3. ACCUTANE [Suspect]
     Route: 065
     Dates: start: 20000914, end: 20010806
  4. ALEVE [Concomitant]
     Dates: start: 19970101
  5. LORAZEPAM [Concomitant]
     Indication: DEPRESSION
     Dates: start: 19970114
  6. EFFEXOR [Concomitant]
     Dates: start: 19970127

REACTIONS (7)
  - SUICIDAL IDEATION [None]
  - IRRITABLE BOWEL SYNDROME [None]
  - COLITIS ULCERATIVE [None]
  - DEPRESSION [None]
  - GASTROINTESTINAL INJURY [None]
  - ARTHRITIS [None]
  - INFLAMMATORY BOWEL DISEASE [None]
